FAERS Safety Report 7904213-3 (Version None)
Quarter: 2011Q4

REPORT INFORMATION
  Report Type: 
  Country: None (occurrence: None)
  Receive Date: 20111109
  Receipt Date: 20111025
  Transmission Date: 20120403
  Serious: Yes (Hospitalization)
  Sender: FDA-Public Use
  Company Number: US-JUTA GMBH-2011-17506

PATIENT
  Age: 89 Year
  Sex: Male
  Weight: 68.027 kg

DRUGS (14)
  1. MIRTAZAPINE [Suspect]
     Indication: DEPRESSION
     Dosage: 15 MG, 1 IN 1 DAY
     Route: 048
     Dates: start: 20080101
  2. ALLOPURINOL [Concomitant]
     Indication: GOUT
     Dosage: 100 MG, 1 IN 1 D
     Route: 048
  3. METOPROLOL TARTRATE [Suspect]
     Indication: PRODUCT USED FOR UNKNOWN INDICATION
     Dosage: 50 MG, 1 IN 1 DAY
     Route: 048
     Dates: start: 20100101, end: 20110101
  4. PLAVIX [Concomitant]
     Indication: ANTICOAGULANT THERAPY
     Dosage: 75 MG, 1 IN 1 D
     Route: 048
  5. COQ10 [Concomitant]
     Indication: UBIQUINONE DECREASED
     Dosage: 100-300 MG ONCE DAILY
     Route: 048
     Dates: start: 20110101
  6. JOINT PAIN [Concomitant]
     Indication: ARTHRITIS
     Dosage: 500 MG, 3 IN 1 D
     Route: 048
     Dates: start: 20080101
  7. PRAVASTATIN SODIUM [Suspect]
     Indication: BLOOD CHOLESTEROL INCREASED
     Dosage: 40 MG, 1 IN 1 DAY
     Route: 048
     Dates: start: 20110601
  8. FELODIPINE [Suspect]
     Indication: HYPERTENSION
     Dosage: 2.5 MG, 1 IN 1 DAY
     Route: 048
     Dates: start: 20100101
  9. VERAPAMIL HCL [Suspect]
     Indication: HYPERTENSION
     Dosage: 120 MG, 1 IN 1 DAY
     Route: 048
  10. CRESTOR [Concomitant]
     Indication: BLOOD CHOLESTEROL INCREASED
     Dosage: 40 MG, 1 IN 1 D
     Route: 048
     Dates: start: 20100101, end: 20110601
  11. FISH OIL [Concomitant]
     Indication: PRODUCT USED FOR UNKNOWN INDICATION
     Dosage: 1G, 1 IN 1 D
     Route: 048
     Dates: start: 20080101
  12. PREDNISONE [Suspect]
     Indication: ANTIINFLAMMATORY THERAPY
     Dosage: 5 MG, ONCE DAILY AS NEEDED
     Route: 048
     Dates: start: 20110101, end: 20110701
  13. TORSEMIDE [Suspect]
     Indication: PRODUCT USED FOR UNKNOWN INDICATION
     Dosage: 10 MG, 1 IN 1 DAY
     Route: 048
  14. DIGOXIN [Concomitant]
     Indication: PRODUCT USED FOR UNKNOWN INDICATION
     Dosage: 125 MCG, 1 IN 1 D
     Route: 048
     Dates: start: 20110101, end: 20110101

REACTIONS (8)
  - CHEST DISCOMFORT [None]
  - DRUG INTERACTION [None]
  - PRE-EXISTING CONDITION IMPROVED [None]
  - UNRESPONSIVE TO STIMULI [None]
  - VISION BLURRED [None]
  - MUSCULAR WEAKNESS [None]
  - HEADACHE [None]
  - DIZZINESS [None]
